FAERS Safety Report 16249123 (Version 2)
Quarter: 2019Q2

REPORT INFORMATION
  Report Type: Spontaneous
  Country: US (occurrence: US)
  Receive Date: 20190429
  Receipt Date: 20190617
  Transmission Date: 20190711
  Serious: No
  Sender: FDA-Public Use
  Company Number: US-SHIRE-US201913836

PATIENT
  Age: 59 Year
  Sex: Female
  Weight: 72.57 kg

DRUGS (1)
  1. XIIDRA [Suspect]
     Active Substance: LIFITEGRAST
     Indication: DRY EYE
     Dosage: UNK
     Route: 047
     Dates: start: 20190415

REACTIONS (4)
  - Dysgeusia [Unknown]
  - Instillation site pruritus [Recovered/Resolved]
  - Instillation site dryness [Recovered/Resolved]
  - Eye irritation [Unknown]

NARRATIVE: CASE EVENT DATE: 20190416
